FAERS Safety Report 18345127 (Version 1)
Quarter: 2020Q4

REPORT INFORMATION
  Report Type: Spontaneous
  Country: US (occurrence: US)
  Receive Date: 20201005
  Receipt Date: 20201005
  Transmission Date: 20210114
  Serious: No
  Sender: FDA-Public Use
  Company Number: US-ALLERGAN-2012064US

PATIENT
  Age: 65 Year
  Sex: Male

DRUGS (6)
  1. LINZESS [Suspect]
     Active Substance: LINACLOTIDE
     Indication: CONSTIPATION
     Dosage: 290 ?G
     Route: 048
     Dates: start: 202003
  2. LINZESS [Suspect]
     Active Substance: LINACLOTIDE
     Dosage: 145 ?G
     Route: 048
  3. LINZESS [Suspect]
     Active Substance: LINACLOTIDE
     Dosage: 290 ?G
     Route: 048
     Dates: start: 202001
  4. DILAUDID [Concomitant]
     Active Substance: HYDROMORPHONE HYDROCHLORIDE
     Indication: BACK PAIN
  5. LORTAB [Concomitant]
     Active Substance: ACETAMINOPHEN\HYDROCODONE BITARTRATE
     Indication: BACK PAIN
     Dosage: UNK
  6. OXYCODONE [Concomitant]
     Active Substance: OXYCODONE
     Indication: BACK PAIN
     Dosage: UNK

REACTIONS (7)
  - Wrong technique in product usage process [Unknown]
  - Therapeutic product effect variable [Unknown]
  - Off label use [Unknown]
  - Product physical issue [Unknown]
  - Drug ineffective [Unknown]
  - Incorrect dose administered [Unknown]
  - Therapeutic product effect increased [Unknown]

NARRATIVE: CASE EVENT DATE: 2020
